FAERS Safety Report 14528522 (Version 1)
Quarter: 2018Q1

REPORT INFORMATION
  Report Type: Spontaneous
  Country: GB (occurrence: GB)
  Receive Date: 20180214
  Receipt Date: 20180214
  Transmission Date: 20180509
  Serious: Yes (Hospitalization)
  Sender: FDA-Public Use
  Company Number: GB-DEXPHARM-20180088

PATIENT
  Age: 92 Year
  Sex: Male

DRUGS (10)
  1. AMLODIPINE [Suspect]
     Active Substance: AMLODIPINE BESYLATE
     Dosage: IN THE MORNING
  2. SIMVASTATIN. [Suspect]
     Active Substance: SIMVASTATIN
     Dosage: IN THE MORNING
  3. FOLIC ACID. [Suspect]
     Active Substance: FOLIC ACID
     Dosage: IN THE MORNING
  4. CLOPIDOGREL [Suspect]
     Active Substance: CLOPIDOGREL BISULFATE
     Dosage: IN THE MORNING
  5. FERROUS FUMARATE [Suspect]
     Active Substance: FERROUS FUMARATE
     Dosage: IN THE MORNING
  6. SODIUM BICARBONATE STD [Suspect]
     Active Substance: SODIUM BICARBONATE
  7. OMEPRAZOLE. [Suspect]
     Active Substance: OMEPRAZOLE
     Dates: start: 20171222
  8. ASCORBIC ACID. [Suspect]
     Active Substance: ASCORBIC ACID
  9. ASCORBIC ACID. [Suspect]
     Active Substance: ASCORBIC ACID
  10. ARANESP [Suspect]
     Active Substance: DARBEPOETIN ALFA

REACTIONS (2)
  - Ischaemic stroke [Not Recovered/Not Resolved]
  - Drug interaction [Not Recovered/Not Resolved]

NARRATIVE: CASE EVENT DATE: 20180119
